FAERS Safety Report 8338766-0 (Version None)
Quarter: 2012Q2

REPORT INFORMATION
  Report Type: 
  Country: None (occurrence: None)
  Receive Date: 20120504
  Receipt Date: 20120426
  Transmission Date: 20120825
  Serious: Yes (Hospitalization)
  Sender: FDA-Public Use
  Company Number: US-B.I. PHARMACEUTICALS,INC./RIDGEFIELD-2012-BP-06550BP

PATIENT
  Sex: Female

DRUGS (6)
  1. COMBIVENT [Suspect]
     Indication: CHRONIC OBSTRUCTIVE PULMONARY DISEASE
     Dosage: 8 PUF
     Route: 055
     Dates: start: 20020101
  2. DIOVAN [Concomitant]
     Indication: HYPERTENSION
  3. OXYGEN [Concomitant]
     Indication: CHRONIC OBSTRUCTIVE PULMONARY DISEASE
     Route: 045
     Dates: start: 20120301
  4. ALPRAZOLAM [Concomitant]
     Indication: ANXIETY
     Route: 048
  5. SPIRIVA [Suspect]
     Indication: CHRONIC OBSTRUCTIVE PULMONARY DISEASE
     Dosage: 18 MCG
     Route: 055
     Dates: start: 20110701
  6. MULTI-VITAMIN [Concomitant]
     Indication: SUPPLEMENTATION THERAPY

REACTIONS (1)
  - DYSPNOEA [None]
